FAERS Safety Report 5353405-9 (Version None)
Quarter: 2007Q2

REPORT INFORMATION
  Report Type: 
  Country: None (occurrence: None)
  Receive Date: 20070612
  Receipt Date: 20070531
  Transmission Date: 20071010
  Serious: Yes (Death, Hospitalization)
  Sender: FDA-Public Use
  Company Number: DE-JNJFOC-20070600128

PATIENT
  Age: 56 Year
  Sex: Female

DRUGS (11)
  1. REMICADE [Suspect]
     Indication: RHEUMATOID ARTHRITIS
     Route: 042
  2. METHOTREXATE [Suspect]
     Indication: RHEUMATOID ARTHRITIS
  3. RITUXIMAB [Suspect]
     Indication: DRUG USE FOR UNKNOWN INDICATION
  4. LEFLUNOMIDE [Concomitant]
  5. METYSOLON [Concomitant]
  6. VOLTREN [Concomitant]
  7. MOBIC [Concomitant]
  8. RAMIPRIL [Concomitant]
  9. CALCIUM D3 [Concomitant]
  10. FORTEO [Concomitant]
  11. FOLCUR [Concomitant]

REACTIONS (5)
  - ARTHRALGIA [None]
  - LOCALISED INFECTION [None]
  - MULTI-ORGAN FAILURE [None]
  - MYALGIA [None]
  - STAPHYLOCOCCAL SEPSIS [None]
